FAERS Safety Report 5369168-7 (Version None)
Quarter: 2007Q2

REPORT INFORMATION
  Report Type: 
  Country: None (occurrence: None)
  Receive Date: 20070625
  Receipt Date: 20070608
  Transmission Date: 20071010
  Serious: Yes (Other)
  Sender: FDA-Public Use
  Company Number: GB-ELI_LILLY_AND_COMPANY-GB200608004133

PATIENT
  Age: 74 Year
  Sex: Female

DRUGS (8)
  1. CEFUROXIME [Suspect]
     Indication: POSTOPERATIVE CARE
     Route: 058
  2. BUPIVACAINE [Concomitant]
     Indication: ANAESTHESIA
     Dosage: 4 ML, UNK
     Route: 047
  3. CHLORAMPHENICOL [Concomitant]
     Indication: POSTOPERATIVE CARE
     Route: 047
  4. HYALURONIDASE [Concomitant]
     Indication: ANAESTHESIA
     Dosage: 4 ML, UNK
     Route: 047
  5. LIDOCAINE [Concomitant]
     Indication: ANAESTHESIA
     Dosage: 4 ML, UNK
     Route: 047
  6. POVIDONE IODINE [Concomitant]
     Indication: ENDOPHTHALMITIS
     Route: 061
  7. PREDNISOLONE [Concomitant]
     Indication: POSTOPERATIVE CARE
     Route: 047
  8. PROXYMETACAINE [Concomitant]
     Route: 047

REACTIONS (3)
  - INTRAOCULAR PRESSURE INCREASED [None]
  - PAROPHTHALMIA [None]
  - VISUAL ACUITY REDUCED [None]
